FAERS Safety Report 7345990-2 (Version None)
Quarter: 2011Q1

REPORT INFORMATION
  Report Type: 
  Country: None (occurrence: None)
  Receive Date: 20110308
  Receipt Date: 20110308
  Transmission Date: 20110831
  Serious: Yes (Other)
  Sender: FDA-Public Use
  Company Number: None

PATIENT
  Age: 64 Year
  Sex: Female
  Weight: 70.3075 kg

DRUGS (1)
  1. CLINDAMYCIN [Suspect]
     Indication: TOOTH EXTRACTION
     Dosage: 1 2X DAILY DENTAL
     Route: 004
     Dates: start: 20110208, end: 20110215

REACTIONS (3)
  - MUCOUS STOOLS [None]
  - CLOSTRIDIUM DIFFICILE COLITIS [None]
  - DIARRHOEA [None]
